FAERS Safety Report 4379151-6 (Version None)
Quarter: 2004Q2

REPORT INFORMATION
  Report Type: 
  Country: None (occurrence: None)
  Receive Date: 20040614
  Receipt Date: 20040602
  Transmission Date: 20050107
  Serious: Yes (Hospitalization)
  Sender: FDA-Public Use
  Company Number: US-JNJFOC-20040600884

PATIENT
  Age: 72 Year
  Sex: Male

DRUGS (6)
  1. INFLIXIMAB (INFLIXIMAB, RECOMBINANT)LYOPHILIZED POWDER [Suspect]
     Indication: RHEUMATOID ARTHRITIS
     Dosage: 300 MG INTRAVENOUS
     Route: 042
     Dates: start: 20040427
  2. METHOTREXATE [Suspect]
     Dosage: 25 MG/ML
     Dates: start: 19890301
  3. LISINOPRIL [Suspect]
     Dosage: 10 MG IN 1 DAY
     Dates: start: 20031201
  4. ATENOLOL [Suspect]
     Dosage: 50 MG IN 1 DAY
     Dates: start: 20030501
  5. NEXIUM [Suspect]
     Dosage: 25 MG/ML, IN 1 WEEK, INJECTION
     Dates: start: 19890301
  6. PRENATAL VITAMIN TABLETS (PRENATAL VITAMINS) [Suspect]
     Dosage: IN 1 DAY
     Dates: start: 19890301

REACTIONS (1)
  - PNEUMOCYSTIS CARINII PNEUMONIA [None]
